FAERS Safety Report 12998079 (Version 2)
Quarter: 2016Q4

REPORT INFORMATION
  Report Type: Spontaneous
  Country: US (occurrence: US)
  Receive Date: 20161205
  Receipt Date: 20161209
  Transmission Date: 20170207
  Serious: Yes (Other)
  Sender: FDA-Public Use
  Company Number: US-PFIZER INC-2016558564

PATIENT

DRUGS (1)
  1. ADVIL [Suspect]
     Active Substance: IBUPROFEN
     Dosage: UNK (7 EVERY 3 HOURS UP TO 20 PLUS PER DAY)

REACTIONS (3)
  - Intentional product use issue [Unknown]
  - Liver disorder [Unknown]
  - Hepatic cirrhosis [Unknown]
